FAERS Safety Report 6441817-1 (Version None)
Quarter: 2009Q4

REPORT INFORMATION
  Report Type: 
  Country: None (occurrence: None)
  Receive Date: 20091113
  Receipt Date: 20091113
  Transmission Date: 20100525
  Serious: Yes (Other)
  Sender: FDA-Public Use
  Company Number: None

PATIENT
  Age: 72 Year
  Sex: Male
  Weight: 118.3888 kg

DRUGS (1)
  1. TRILIPIX [Suspect]
     Indication: HYPERLIPIDAEMIA

REACTIONS (2)
  - PRODUCT QUALITY ISSUE [None]
  - RENAL FAILURE [None]
